FAERS Safety Report 8617641-8 (Version None)
Quarter: 2012Q3

REPORT INFORMATION
  Report Type: 
  Country: None (occurrence: None)
  Receive Date: 20120824
  Receipt Date: 20120419
  Transmission Date: 20120928
  Serious: No
  Sender: FDA-Public Use
  Company Number: US-ASTRAZENECA-2011SE75630

PATIENT
  Age: 71 Year
  Sex: Male
  Weight: 95.3 kg

DRUGS (3)
  1. VENTOLIN [Concomitant]
  2. SPIRIVA [Concomitant]
     Indication: EMPHYSEMA
  3. SYMBICORT [Suspect]
     Indication: EMPHYSEMA
     Dosage: 2 PUFFS 160/4.5 MCG, TWO TIMES A DAY
     Route: 055

REACTIONS (2)
  - DRUG INEFFECTIVE [None]
  - CONDITION AGGRAVATED [None]
